FAERS Safety Report 9382306 (Version 1)
Quarter: 2013Q3

REPORT INFORMATION
  Report Type: Spontaneous
  Country: US (occurrence: None)
  Receive Date: 20130702
  Receipt Date: 20130702
  Transmission Date: 20140515
  Serious: Yes (Disabling)
  Sender: FDA-Public Use
  Company Number: None

PATIENT
  Age: 78 Year
  Sex: Female
  Weight: 83.92 kg

DRUGS (1)
  1. ZOFRAN [Suspect]
     Indication: ANTIEMETIC SUPPORTIVE CARE
     Route: 030

REACTIONS (4)
  - Injection site pain [None]
  - Joint effusion [None]
  - Neuralgia [None]
  - Paraesthesia [None]
